FAERS Safety Report 7668615-5 (Version None)
Quarter: 2011Q3

REPORT INFORMATION
  Report Type: 
  Country: None (occurrence: None)
  Receive Date: 20110808
  Receipt Date: 20110808
  Transmission Date: 20111222
  Serious: No
  Sender: FDA-Public Use
  Company Number: None

PATIENT
  Age: 52 Year
  Sex: Male
  Weight: 68.038 kg

DRUGS (1)
  1. CIPROFLOXACIN [Suspect]
     Indication: PROSTATITIS
     Dosage: 14
     Route: 048
     Dates: start: 20110615, end: 20110722

REACTIONS (6)
  - JOINT SWELLING [None]
  - MOBILITY DECREASED [None]
  - IMPAIRED WORK ABILITY [None]
  - CONTUSION [None]
  - INSOMNIA [None]
  - MUSCULOSKELETAL PAIN [None]
